FAERS Safety Report 26044000 (Version 1)
Quarter: 2025Q4

REPORT INFORMATION
  Report Type: Spontaneous
  Country: US (occurrence: US)
  Receive Date: 20251114
  Receipt Date: 20251114
  Transmission Date: 20260118
  Serious: Yes (Other)
  Sender: TWI PHARMACEUTICALS
  Company Number: US-TWI PHARMACEUTICAL, INC-20251101445

PATIENT
  Age: 55 Year
  Sex: Female

DRUGS (1)
  1. DILTIAZEM HYDROCHLORIDE [Suspect]
     Active Substance: DILTIAZEM HYDROCHLORIDE
     Indication: Product used for unknown indication
     Dosage: 6 GRAM
     Route: 065

REACTIONS (7)
  - Distributive shock [Recovered/Resolved]
  - Pneumonia aspiration [Recovered/Resolved]
  - Encephalopathy [Recovered/Resolved]
  - Cardiac arrest [Recovered/Resolved]
  - Overdose [Unknown]
  - Tachyarrhythmia [Recovered/Resolved]
  - Toxicity to various agents [Recovered/Resolved]
